FAERS Safety Report 19012628 (Version 1)
Quarter: 2021Q1

REPORT INFORMATION
  Report Type: Spontaneous
  Country: US (occurrence: US)
  Receive Date: 20210316
  Receipt Date: 20210316
  Transmission Date: 20210420
  Serious: Yes (Other)
  Sender: FDA-Public Use
  Company Number: None

PATIENT
  Age: 68 Year
  Sex: Male
  Weight: 103.7 kg

DRUGS (12)
  1. METFORMIN 1000 MG PO BID [Concomitant]
  2. NIFEDIPINE XL 90 MG PO DAILY [Concomitant]
  3. ATORVASTATIN 80 MG PO DAILY [Concomitant]
  4. LOSARTAN 100 MG PO DAILY [Concomitant]
  5. RYBELSUS 7 MG PO DAILY [Concomitant]
  6. CLONIDINE 0.1 MG PO BID [Concomitant]
  7. MINOXIDIL 10 MG PO DAILY [Concomitant]
  8. REMDESIVIR. [Suspect]
     Active Substance: REMDESIVIR
     Indication: COVID-19
     Route: 041
     Dates: start: 20201222, end: 20201229
  9. CALCIUM CARBONATE / VITAMIN D3 PO DAILY [Concomitant]
  10. OMEGA 3 FATTY ACIDS 1000 MG DAILY [Concomitant]
  11. INSULIN LEVEMIR FLEXTOUCH 37 UNITS SQ BID [Concomitant]
  12. ASPIRIN EC 81 MG PO DAILY [Concomitant]

REACTIONS (1)
  - Alanine aminotransferase increased [None]

NARRATIVE: CASE EVENT DATE: 20201231
